FAERS Safety Report 16127278 (Version 2)
Quarter: 2019Q2

REPORT INFORMATION
  Report Type: Report from Study
  Country: CA (occurrence: CA)
  Receive Date: 20190328
  Receipt Date: 20190430
  Transmission Date: 20190711
  Serious: Yes (Other)
  Sender: FDA-Public Use
  Company Number: PHHY2018CA186646

PATIENT
  Sex: Female

DRUGS (1)
  1. GILENYA [Suspect]
     Active Substance: FINGOLIMOD HYDROCHLORIDE
     Indication: PRODUCT USED FOR UNKNOWN INDICATION
     Dosage: UNK
     Route: 048
     Dates: start: 20161228

REACTIONS (4)
  - Lower respiratory tract infection [Unknown]
  - Cough [Unknown]
  - Muscle strain [Unknown]
  - Asthma [Unknown]

NARRATIVE: CASE EVENT DATE: 2018
